FAERS Safety Report 7051537-0 (Version None)
Quarter: 2010Q4

REPORT INFORMATION
  Report Type: 
  Country: None (occurrence: None)
  Receive Date: 20101014
  Receipt Date: 20100928
  Transmission Date: 20110411
  Serious: Yes (Death, Hospitalization, Other)
  Sender: FDA-Public Use
  Company Number: 015461/AE 2010-075

PATIENT
  Age: 76 Year
  Sex: Male

DRUGS (8)
  1. PRIALT [Suspect]
     Indication: NEUROPATHY PERIPHERAL
     Dosage: 0.07 UG/HOUR INTRATHECAL
     Route: 037
     Dates: start: 20070101, end: 20100701
  2. CLONIDINE [Concomitant]
  3. METHADONE [Concomitant]
  4. DILAUDID [Concomitant]
  5. BUPIVACAINE HCL [Concomitant]
  6. NEURONTIN [Concomitant]
  7. NEXIUM [Concomitant]
  8. BENICAR [Concomitant]

REACTIONS (11)
  - BURNING SENSATION [None]
  - CEREBROVASCULAR ACCIDENT [None]
  - CONVULSION [None]
  - DISEASE RECURRENCE [None]
  - FOAMING AT MOUTH [None]
  - MENTAL IMPAIRMENT [None]
  - MUSCLE SPASMS [None]
  - OROPHARYNGEAL BLISTERING [None]
  - PANCREATIC CARCINOMA [None]
  - PNEUMONIA [None]
  - WITHDRAWAL SYNDROME [None]
